FAERS Safety Report 7611931-3 (Version None)
Quarter: 2011Q3

REPORT INFORMATION
  Report Type: 
  Country: None (occurrence: None)
  Receive Date: 20110715
  Receipt Date: 20110707
  Transmission Date: 20111222
  Serious: Yes (Hospitalization, Other)
  Sender: FDA-Public Use
  Company Number: NL-ABBOTT-11P-114-0698122-00

PATIENT
  Sex: Male

DRUGS (15)
  1. EZETIMIBE [Concomitant]
     Indication: BLOOD CHOLESTEROL INCREASED
     Route: 048
  2. PREDNISOLONE [Concomitant]
     Indication: ANTISYNTHETASE SYNDROME
     Route: 048
     Dates: start: 20080401
  3. PREDNISOLONE [Concomitant]
     Route: 048
     Dates: start: 20110401
  4. TAMSULOSIN HCL [Concomitant]
     Indication: PROSTATE CANCER
     Route: 048
  5. TERBINAFINE HCL [Concomitant]
     Indication: TINEA PEDIS
     Route: 048
  6. TRIAMTER/HYDROCHLOROTHIAZIDE [Concomitant]
     Indication: FLUID RETENTION
     Dosage: 1 IN 1 DAY, 50/25 MG
     Route: 048
     Dates: start: 20110401
  7. VERAPAMIL [Concomitant]
     Indication: CARDIAC DISORDER
     Route: 048
     Dates: start: 20080401
  8. LEUPROLIDE ACETATE [Suspect]
     Indication: PROSTATE CANCER
     Route: 058
     Dates: start: 20101018
  9. ACENOCOUMAROL [Concomitant]
     Indication: ARRHYTHMIA
     Dosage: ACCORDING TO SCHEDULE
     Route: 048
     Dates: start: 19930101, end: 20101001
  10. ACENOCOUMAROL [Concomitant]
     Indication: THROMBOSIS
     Dosage: ACCORDING TO SCHEME
     Route: 048
     Dates: start: 20110401
  11. FENPROCOUMON [Concomitant]
     Indication: THROMBOSIS
     Dosage: ACCORDING TO SCHEDULE
     Route: 048
     Dates: start: 20101001
  12. PANTOPRAZOLE [Concomitant]
     Indication: GASTRIC DISORDER
     Route: 048
  13. VITAMIN D [Concomitant]
     Indication: VITAMIN D DEFICIENCY
     Route: 048
     Dates: start: 20110401
  14. TACROLIMUS [Concomitant]
     Indication: ANTISYNTHETASE SYNDROME
     Route: 048
     Dates: start: 20080401
  15. LANOXIN [Concomitant]
     Indication: HYPERTENSION
     Route: 048
     Dates: start: 20110401

REACTIONS (8)
  - ASTHENIA [None]
  - WEIGHT INCREASED [None]
  - VOMITING [None]
  - ALOPECIA [None]
  - PULMONARY EMBOLISM [None]
  - HAEMATOMA [None]
  - DIARRHOEA [None]
  - GYNAECOMASTIA [None]
